FAERS Safety Report 9199030 (Version 2)
Quarter: 2013Q2

REPORT INFORMATION
  Report Type: Spontaneous
  Country: US (occurrence: None)
  Receive Date: 20130325
  Receipt Date: 20130401
  Transmission Date: 20140414
  Serious: No
  Sender: FDA-Public Use
  Company Number: 2013US-004601

PATIENT
  Age: 63 Year
  Sex: Female

DRUGS (24)
  1. OMONTYS (PEGINESATIDE) SOLUTION FOR INJECTION [Suspect]
     Indication: NEPHROGENIC ANAEMIA
     Dosage: 15 MG, Q 2 WEEKS, INTRAVENOUS
     Route: 042
     Dates: start: 20130219, end: 20130219
  2. EPOGEN (EPOETIN ALFA) [Concomitant]
  3. ZEMPLAR (PARICALCITOL) [Concomitant]
  4. ONDANSETRON HCL (ONDANSETRON HYDROCHLORIDE) [Concomitant]
  5. ACETAMINOPHEN (PARACETAMOL) [Concomitant]
  6. HYPERTONIC SALINE SOLUTION (SODIUM CHLORIDE) [Concomitant]
  7. MANNITOL (MANNITOL) [Concomitant]
  8. PROSTAT (CHLORMADINONE ACETATE) [Concomitant]
  9. AMLODIPINE (AMLODIPINE) [Concomitant]
  10. MINOXIDIL (MINOXIDIL) [Concomitant]
  11. PROCARDIA (NIFEDIPINE) [Concomitant]
  12. EMLA (LIDOCAINE, PRILOCAINE) [Concomitant]
  13. MEGACE (MEGESTROL ACETATE) [Concomitant]
  14. ZOCOR (SIMVASTATIN [Concomitant]
  15. TRAMADOL (TRAMADOL) [Concomitant]
  16. ERYTHROMYCIN (ERYTHROMYCIN) [Concomitant]
  17. NITROQUICK (GLYCERYL TRINITRATE) [Concomitant]
  18. PRILOSEC [Concomitant]
  19. ALLEGRO (FLUTICASONE PROPIONATE) [Concomitant]
  20. PLAVIX (CLOPIDOGREL BISULFATE) [Concomitant]
  21. DIOVAN (VALSARTAN) [Concomitant]
  22. METOPROLOL (METOPROLOL) [Concomitant]
  23. PHOSLO (CALCIUM ACETATE) [Concomitant]
  24. ENSURE [Concomitant]

REACTIONS (2)
  - Pruritus [None]
  - Hypersensitivity [None]
